FAERS Safety Report 7714912-4 (Version None)
Quarter: 2011Q3

REPORT INFORMATION
  Report Type: 
  Country: None (occurrence: None)
  Receive Date: 20110829
  Receipt Date: 20110818
  Transmission Date: 20111222
  Serious: Yes (Hospitalization, Other)
  Sender: FDA-Public Use
  Company Number: US-PFIZER INC-2011191890

PATIENT
  Age: 10 Year
  Sex: Male

DRUGS (2)
  1. ETHOSUXIMIDE [Suspect]
     Dosage: 750 MG, 2X/DAY
     Route: 048
  2. ETHOSUXIMIDE [Suspect]
     Indication: PETIT MAL EPILEPSY
     Dosage: 500 MG, 2X/DAY
     Route: 048

REACTIONS (10)
  - HEADACHE [None]
  - MOOD SWINGS [None]
  - MANIA [None]
  - PRESSURE OF SPEECH [None]
  - PARANOIA [None]
  - ABNORMAL BEHAVIOUR [None]
  - PSYCHOTIC DISORDER [None]
  - AGGRESSION [None]
  - SUICIDAL IDEATION [None]
  - INSOMNIA [None]
